FAERS Safety Report 10373702 (Version 1)
Quarter: 2014Q1

REPORT INFORMATION
  Report Type: Spontaneous
  Country: US (occurrence: None)
  Receive Date: 20140306
  Receipt Date: 20140306
  Transmission Date: 20141002
  Serious: Yes (Other)
  Sender: FDA-Public Use
  Company Number: 163-21880-13083505

PATIENT
  Age: 62 Year
  Sex: Female

DRUGS (13)
  1. REVLIMID (LENALIDOMIDE) (10 MILLIGRAM, CAPSULES) [Suspect]
     Indication: PLASMA CELL MYELOMA
     Route: 048
     Dates: start: 20130808
  2. SYNTHROID (LEVOTHYROXINE SODIUM) (TABLETS) [Concomitant]
  3. ACYCLOVIR (ACICLOVIR) (CAPSULES) [Concomitant]
  4. VITAMIN E (TOCOPHEROL) [Concomitant]
  5. BACTRIM DS [Concomitant]
  6. FISH OIL (CAPSULES) [Concomitant]
  7. CALCIUM [Concomitant]
  8. OXYCONTIN (OXYCODONE HYDROCHLORIDE) (TABLETS) [Concomitant]
  9. MULTIVITAMINS (CAPSULES) [Concomitant]
  10. ADULT ASPIRIN (ACETYLSALICYLIC ACID) [Concomitant]
  11. FOLIC ACID [Concomitant]
  12. VITAMIN B6 (PYRIDOXINE HYDROCHLORIDE) [Concomitant]
  13. VITAMIN D3 (COLECALCIFEROL) [Concomitant]

REACTIONS (3)
  - Skin exfoliation [None]
  - Rash generalised [None]
  - Pruritus [None]
